FAERS Safety Report 8475285-5 (Version None)
Quarter: 2012Q2

REPORT INFORMATION
  Report Type: 
  Country: None (occurrence: None)
  Receive Date: 20120628
  Receipt Date: 20120618
  Transmission Date: 20120825
  Serious: Yes (Hospitalization)
  Sender: FDA-Public Use
  Company Number: US-ROCHE-1071424

PATIENT
  Sex: Female
  Weight: 108.2 kg

DRUGS (5)
  1. AVASTIN [Suspect]
     Indication: BREAST CANCER
     Dosage: OVER 30-90 MIN ON DAY 1
     Route: 042
     Dates: start: 20081009
  2. PACLITAXEL [Suspect]
     Indication: BREAST CANCER
     Dosage: OVER 1 HOUR ON DAYS 1, 8, 15
     Route: 042
     Dates: start: 20081009
  3. DOXORUBICIN HCL [Suspect]
     Indication: BREAST CANCER
     Dosage: ON DAY 1
     Route: 042
     Dates: start: 20081009
  4. CYCLOPHOSPHAMIDE [Suspect]
     Indication: BREAST CANCER
     Dosage: OVER 20- 30 MIN ON DAY 1
     Route: 042
     Dates: start: 20081009
  5. PEGFILGRASTIM [Suspect]
     Indication: BREAST CANCER
     Dosage: ON DAY 2
     Route: 058
     Dates: start: 20081009

REACTIONS (3)
  - EPISTAXIS [None]
  - PHARYNGEAL INFLAMMATION [None]
  - EJECTION FRACTION DECREASED [None]
